FAERS Safety Report 24271452 (Version 3)
Quarter: 2024Q4

REPORT INFORMATION
  Report Type: Report from Study
  Country: US (occurrence: US)
  Receive Date: 20240901
  Receipt Date: 20241118
  Transmission Date: 20250115
  Serious: Yes (Other)
  Sender: ABBVIE
  Company Number: US-ABBVIE-5807037

PATIENT
  Sex: Female
  Weight: 61 kg

DRUGS (11)
  1. SKYRIZI [Suspect]
     Active Substance: RISANKIZUMAB-RZAA
     Indication: Crohn^s disease
     Dosage: STRENGTH 150 MG/ML, LAST ADMIN DATE 2024
     Route: 058
     Dates: start: 2024
  2. SKYRIZI [Suspect]
     Active Substance: RISANKIZUMAB-RZAA
     Indication: Small intestinal obstruction
     Dosage: STRENGTH 150 MG/ML
     Route: 058
     Dates: start: 202211, end: 20240222
  3. HUMAN PAPILLOMAVIRUS QUADRIVALENT (TYPES 6, 11, 16, AND 18) VACCINE, R [Concomitant]
     Active Substance: HUMAN PAPILLOMAVIRUS QUADRIVALENT (TYPES 6, 11, 16, AND 18) VACCINE, RECOMBINANT
     Indication: Immunisation
     Dates: start: 2018, end: 2018
  4. HUMAN PAPILLOMAVIRUS QUADRIVALENT (TYPES 6, 11, 16, AND 18) VACCINE, R [Concomitant]
     Active Substance: HUMAN PAPILLOMAVIRUS QUADRIVALENT (TYPES 6, 11, 16, AND 18) VACCINE, RECOMBINANT
     Indication: Immunisation
     Dates: start: 2019, end: 2019
  5. PHEXXI [Concomitant]
     Active Substance: CITRIC ACID MONOHYDRATE\LACTIC ACID, L-\POTASSIUM BITARTRATE
     Indication: Contraception
     Dosage: 1,8-1-0.4 PERCENT
  6. XANAX [Concomitant]
     Active Substance: ALPRAZOLAM
     Indication: Anxiety
     Dosage: AS NEEDED
     Route: 048
  7. VITAMIN B12 [Concomitant]
     Active Substance: CYANOCOBALAMIN
     Indication: Product used for unknown indication
     Dosage: 1000 MCG DAILY , UNDER TONGUE
     Route: 048
  8. BIFIDOBACTERIUM ANIMALIS LACTIS\LACTOBACILLUS ACIDOPHILUS [Concomitant]
     Active Substance: BIFIDOBACTERIUM ANIMALIS LACTIS\DIETARY SUPPLEMENT\LACTOBACILLUS ACIDOPHILUS
     Indication: Product used for unknown indication
     Dosage: PROBIOTIC ONE TAB BY MOUTH DAILY
     Route: 048
  9. CHOLINE [Concomitant]
     Active Substance: CHOLINE
     Indication: Product used for unknown indication
     Route: 048
  10. FOLIC ACID [Concomitant]
     Active Substance: FOLIC ACID
     Indication: Supplementation therapy
     Dosage: FOUR TABLETS DAILY
     Route: 048
  11. TYLENOL [Concomitant]
     Active Substance: ACETAMINOPHEN
     Indication: Pain
     Dates: start: 20240618

REACTIONS (27)
  - Vulval abscess [Recovered/Resolved]
  - Crohn^s disease [Recovered/Resolved]
  - Anal fistula [Recovered/Resolved]
  - Anal abscess [Recovered/Resolved]
  - Cervical dysplasia [Unknown]
  - Anal fistula [Recovering/Resolving]
  - Anal abscess [Recovering/Resolving]
  - Menstruation irregular [Recovered/Resolved]
  - Intermenstrual bleeding [Recovered/Resolved]
  - Coital bleeding [Recovered/Resolved]
  - Maternal exposure during pregnancy [Unknown]
  - Nausea [Recovered/Resolved]
  - Abdominal pain [Recovered/Resolved]
  - Rectal abscess [Unknown]
  - Fatigue [Not Recovered/Not Resolved]
  - Breast tenderness [Recovered/Resolved]
  - Vulvovaginal pain [Not Recovered/Not Resolved]
  - Vaginal haemorrhage [Recovered/Resolved]
  - Abdominal pain [Not Recovered/Not Resolved]
  - Abdominal discomfort [Not Recovered/Not Resolved]
  - Dehydration [Not Recovered/Not Resolved]
  - Fall [Recovered/Resolved]
  - Dizziness [Recovered/Resolved]
  - Depressed mood [Not Recovered/Not Resolved]
  - Anxiety [Not Recovered/Not Resolved]
  - Abdominal pain [Not Recovered/Not Resolved]
  - Fistula [Unknown]

NARRATIVE: CASE EVENT DATE: 20230101
